FAERS Safety Report 23138500 (Version 1)
Quarter: 2023Q4

REPORT INFORMATION
  Report Type: Spontaneous
  Country: US (occurrence: US)
  Receive Date: 20231102
  Receipt Date: 20231102
  Transmission Date: 20240109
  Serious: No
  Sender: FDA-Public Use
  Company Number: US-JNJFOC-20231068841

PATIENT
  Sex: Male

DRUGS (3)
  1. RISPERDAL [Suspect]
     Active Substance: RISPERIDONE
     Indication: Anxiety
     Route: 048
  2. RISPERDAL [Suspect]
     Active Substance: RISPERIDONE
     Indication: Affective disorder
     Route: 048
     Dates: end: 2016
  3. RISPERDAL [Suspect]
     Active Substance: RISPERIDONE
     Route: 048

REACTIONS (4)
  - Gynaecomastia [Unknown]
  - Weight increased [Recovered/Resolved]
  - Vomiting [Recovered/Resolved]
  - Off label use [Unknown]

NARRATIVE: CASE EVENT DATE: 20110101
